FAERS Safety Report 5835501-2 (Version None)
Quarter: 2008Q3

REPORT INFORMATION
  Report Type: 
  Country: None (occurrence: None)
  Receive Date: 20080806
  Receipt Date: 20080725
  Transmission Date: 20090109
  Serious: Yes (Hospitalization)
  Sender: FDA-Public Use
  Company Number: US-KINGPHARMUSA00001-K200800865

PATIENT

DRUGS (10)
  1. ALTACE [Suspect]
     Dosage: 10 TABLETS, SINGLE
     Route: 048
     Dates: start: 20071209, end: 20071209
  2. DIGITALINE NATIVELLE [Suspect]
     Dosage: 10 TABLETS, SINGLE
     Route: 048
     Dates: start: 20071209, end: 20071209
  3. CORDARONE [Suspect]
     Dosage: 10 TABLETS, 2000 MG, SINGLE
     Route: 048
     Dates: start: 20071209, end: 20071209
  4. OXAZEPAM [Suspect]
     Dosage: 10 TABLETS, SINGLE
     Route: 048
     Dates: start: 20071209, end: 20071209
  5. PREVISCAN                          /00789001/ [Concomitant]
     Route: 048
  6. ELISOR [Concomitant]
     Dosage: 40 MG, UNK
     Route: 048
  7. EFFEXOR [Concomitant]
     Route: 048
  8. LASIX [Concomitant]
     Route: 048
  9. BISOPROLOL FUMARATE [Concomitant]
     Route: 048
  10. TOPIRAMATE [Concomitant]
     Indication: TREMOR
     Dosage: UNK, UNK
     Route: 048
     Dates: start: 20070801, end: 20071201

REACTIONS (2)
  - MULTIPLE DRUG OVERDOSE INTENTIONAL [None]
  - SUICIDE ATTEMPT [None]
